FAERS Safety Report 4661067-9 (Version None)
Quarter: 2005Q2

REPORT INFORMATION
  Report Type: 
  Country: None (occurrence: None)
  Receive Date: 20050511
  Receipt Date: 20050426
  Transmission Date: 20051028
  Serious: Yes (Other)
  Sender: FDA-Public Use
  Company Number: JP-2005-004479

PATIENT
  Age: 80 Year
  Sex: Female

DRUGS (5)
  1. PROSCOPE 300(IOPROMIDE) INFUSION [Suspect]
     Indication: COMPUTERISED TOMOGRAM
     Dosage: 100 ML, 1 DOSE, INTRAVENOUS
     Route: 042
     Dates: start: 20060317, end: 20060317
  2. TAKEPRON (LANSOPRAZOLE) [Concomitant]
  3. PANTOSIN (PANTETHINE) [Concomitant]
  4. RHUBARB DRY EXTRACT (RHEUM PALMATUM DRY EXTRACT) [Concomitant]
  5. ZOLPIDEM TARTRATE [Concomitant]

REACTIONS (3)
  - ANAPHYLACTIC SHOCK [None]
  - BLOOD PRESSURE IMMEASURABLE [None]
  - LOSS OF CONSCIOUSNESS [None]
